FAERS Safety Report 17681636 (Version 5)
Quarter: 2020Q3

REPORT INFORMATION
  Report Type: Report from Study
  Country: EG (occurrence: EG)
  Receive Date: 20200417
  Receipt Date: 20200706
  Transmission Date: 20201102
  Serious: Yes (Hospitalization, Other)
  Sender: FDA-Public Use
  Company Number: EG-REGENERON PHARMACEUTICALS, INC.-2020-31922

PATIENT

DRUGS (4)
  1. MIXTARD [INSULIN;ISOPHANE INSULIN] [Concomitant]
     Indication: DIABETES MELLITUS
     Dosage: BID (60 UNITS IN THE MORNING AND 40 UNITS AT NIGHT)
  2. EYLEA [Suspect]
     Active Substance: AFLIBERCEPT
     Indication: DIABETIC RETINAL OEDEMA
     Dosage: LEFT EYE; ONLY ONE INJECTION
     Route: 031
     Dates: start: 20191002, end: 20191002
  3. MIXTARD [INSULIN;ISOPHANE INSULIN] [Concomitant]
     Dosage: 1 DF (AT LUNCH)
  4. GALVUS MET [METFORMIN HYDROCHLORIDE;VILDAGLIPTIN] [Concomitant]
     Indication: DIABETES MELLITUS
     Dosage: 1 DF, QD (WITH LUNCH)
     Dates: start: 202003

REACTIONS (10)
  - Blood pressure increased [Recovering/Resolving]
  - Kidney infection [Not Recovered/Not Resolved]
  - Colitis [Not Recovered/Not Resolved]
  - Therapeutic product ineffective [Not Recovered/Not Resolved]
  - Cholecystectomy [Recovering/Resolving]
  - Pupil fixed [Not Recovered/Not Resolved]
  - Intracardiac thrombus [Recovering/Resolving]
  - Blood glucose increased [Recovering/Resolving]
  - Inappropriate schedule of product administration [Not Recovered/Not Resolved]
  - Cardiac failure [Recovering/Resolving]

NARRATIVE: CASE EVENT DATE: 20191002
